FAERS Safety Report 19106714 (Version 2)
Quarter: 2021Q2

REPORT INFORMATION
  Report Type: Spontaneous
  Country: JP (occurrence: JP)
  Receive Date: 20210408
  Receipt Date: 20210507
  Transmission Date: 20210717
  Serious: Yes (Hospitalization, Other)
  Sender: FDA-Public Use
  Company Number: NVSJ2021JP005473

PATIENT
  Age: 54 Year
  Sex: Male

DRUGS (4)
  1. BENZALIN [Concomitant]
     Indication: SEIZURE PROPHYLAXIS
     Route: 065
  2. GABALON [Suspect]
     Active Substance: BACLOFEN
     Indication: SEIZURE PROPHYLAXIS
     Route: 065
  3. TEGRETOL [Suspect]
     Active Substance: CARBAMAZEPINE
     Indication: SEIZURE PROPHYLAXIS
     Route: 065
  4. HORIZON [Suspect]
     Active Substance: DIAZEPAM
     Indication: SEIZURE PROPHYLAXIS
     Route: 065

REACTIONS (1)
  - Femur fracture [Recovering/Resolving]
